FAERS Safety Report 16019286 (Version 5)
Quarter: 2019Q2

REPORT INFORMATION
  Report Type: Spontaneous
  Country: US (occurrence: US)
  Receive Date: 20190228
  Receipt Date: 20190425
  Transmission Date: 20190711
  Serious: Yes (Hospitalization)
  Sender: FDA-Public Use
  Company Number: US-ACTELION-A-NJ2019-186964

PATIENT
  Sex: Female
  Weight: 94.79 kg

DRUGS (3)
  1. SILDENAFIL CITRATE. [Concomitant]
     Active Substance: SILDENAFIL CITRATE
  2. VELETRI [Suspect]
     Active Substance: EPOPROSTENOL
     Indication: PULMONARY HYPERTENSION
     Dosage: 15 NG/KG, PER MIN
     Route: 042
  3. VELETRI [Suspect]
     Active Substance: EPOPROSTENOL
     Dosage: 14 NG
     Route: 042

REACTIONS (10)
  - Catheter site discolouration [Unknown]
  - Swelling face [Recovering/Resolving]
  - Dyspnoea [Unknown]
  - Cholelithiasis [Unknown]
  - Oedema [Recovering/Resolving]
  - Administration site pruritus [Unknown]
  - Headache [Recovering/Resolving]
  - Gallbladder disorder [Unknown]
  - Rash [Unknown]
  - Oedema peripheral [Recovering/Resolving]
